FAERS Safety Report 12828005 (Version 2)
Quarter: 2016Q4

REPORT INFORMATION
  Report Type: Report from Study
  Country: CL (occurrence: CL)
  Receive Date: 20161007
  Receipt Date: 20161025
  Transmission Date: 20170207
  Serious: Yes (Hospitalization)
  Sender: FDA-Public Use
  Company Number: CL-B.I. PHARMACEUTICALS,INC./RIDGEFIELD-2016-BI-47334BI

PATIENT
  Age: 72 Year
  Sex: Male
  Weight: 98 kg

DRUGS (20)
  1. CARVEDILOL. [Concomitant]
     Active Substance: CARVEDILOL
     Indication: CARDIAC FAILURE
     Route: 048
     Dates: start: 20160506
  2. NPH INSULIN [Concomitant]
     Active Substance: INSULIN BEEF
     Route: 058
     Dates: start: 20160721
  3. NPH INSULIN [Concomitant]
     Active Substance: INSULIN BEEF
     Route: 058
     Dates: start: 20160503, end: 20160506
  4. CARVEDILOL. [Concomitant]
     Active Substance: CARVEDILOL
     Indication: CARDIAC FAILURE CONGESTIVE
     Route: 048
     Dates: start: 20160412, end: 20160505
  5. FUROSEMIDE. [Concomitant]
     Active Substance: FUROSEMIDE
     Indication: CARDIAC FAILURE
     Route: 050
     Dates: start: 20160714, end: 20160718
  6. TRAMADOL. [Concomitant]
     Active Substance: TRAMADOL
     Indication: BACK PAIN
     Route: 048
     Dates: start: 20160716
  7. FUROSEMIDE. [Concomitant]
     Active Substance: FUROSEMIDE
     Route: 048
     Dates: start: 20120820, end: 20160504
  8. FUROSEMIDE. [Concomitant]
     Active Substance: FUROSEMIDE
     Route: 048
     Dates: start: 20160506, end: 20160713
  9. BLINDED LINAGLIPTIN [Suspect]
     Active Substance: LINAGLIPTIN
     Indication: TYPE 2 DIABETES MELLITUS
     Route: 048
     Dates: start: 20151117
  10. IPRATROPIUM BROMIDE. [Concomitant]
     Active Substance: IPRATROPIUM BROMIDE
     Indication: CARDIAC FAILURE
     Route: 055
     Dates: start: 20160714
  11. NPH INSULIN [Concomitant]
     Active Substance: INSULIN BEEF
     Indication: TYPE 2 DIABETES MELLITUS
     Route: 058
     Dates: start: 20160507, end: 20160713
  12. OMEPRAZOL [Concomitant]
     Active Substance: OMEPRAZOLE
     Indication: PROPHYLAXIS
     Route: 048
     Dates: start: 20160715
  13. HYDRALAZINE [Concomitant]
     Active Substance: HYDRALAZINE HYDROCHLORIDE
     Indication: CARDIAC FAILURE CONGESTIVE
     Route: 048
     Dates: start: 2000
  14. NPH INSULIN [Concomitant]
     Active Substance: INSULIN BEEF
     Route: 058
     Dates: start: 20160714, end: 20160720
  15. ASPIRIN. [Concomitant]
     Active Substance: ASPIRIN
     Indication: CARDIOVASCULAR DISORDER
     Route: 048
     Dates: start: 2000
  16. ATORVASTATIN [Concomitant]
     Active Substance: ATORVASTATIN
     Indication: DYSLIPIDAEMIA
     Route: 048
     Dates: start: 2000
  17. FERROUS SULFATE. [Concomitant]
     Active Substance: FERROUS SULFATE
     Indication: ANAEMIA
     Route: 048
     Dates: start: 20160715
  18. FUROSEMIDE. [Concomitant]
     Active Substance: FUROSEMIDE
     Indication: CARDIAC FAILURE CONGESTIVE
     Route: 048
     Dates: start: 20160719
  19. PARACETAMOL [Concomitant]
     Active Substance: ACETAMINOPHEN
     Indication: BACK PAIN
     Route: 048
     Dates: start: 20160716
  20. ISOSORBIDE. [Concomitant]
     Active Substance: ISOSORBIDE
     Indication: CARDIAC FAILURE CONGESTIVE
     Route: 048
     Dates: start: 2000

REACTIONS (2)
  - Dyspnoea [Not Recovered/Not Resolved]
  - Glomerular filtration rate decreased [Not Recovered/Not Resolved]

NARRATIVE: CASE EVENT DATE: 20160630
